FAERS Safety Report 18638781 (Version 1)
Quarter: 2020Q4

REPORT INFORMATION
  Report Type: Spontaneous
  Country: US (occurrence: US)
  Receive Date: 20201218
  Receipt Date: 20201218
  Transmission Date: 20210114
  Serious: No
  Sender: FDA-Public Use
  Company Number: US-ROCHE-2622944

PATIENT
  Sex: Male

DRUGS (5)
  1. TRAMADOL HYDROCHLORIDE. [Concomitant]
     Active Substance: TRAMADOL HYDROCHLORIDE
     Route: 048
  2. GAZYVA [Suspect]
     Active Substance: OBINUTUZUMAB
     Indication: AGRANULOCYTOSIS
     Route: 042
  3. ACYCLOVIR. [Concomitant]
     Active Substance: ACYCLOVIR
     Route: 048
  4. VITAMIN C [Concomitant]
     Active Substance: ASCORBIC ACID
  5. TRIMETHOPRIM SULFAMETHOXAZOLE [Concomitant]
     Active Substance: SULFAMETHOXAZOLE\TRIMETHOPRIM
     Route: 065

REACTIONS (3)
  - Intentional product use issue [Unknown]
  - Off label use [Unknown]
  - No adverse event [Unknown]
